FAERS Safety Report 16266744 (Version 1)
Quarter: 2019Q2

REPORT INFORMATION
  Report Type: Spontaneous
  Country: SE (occurrence: SE)
  Receive Date: 20190502
  Receipt Date: 20190502
  Transmission Date: 20190711
  Serious: Yes (Hospitalization)
  Sender: FDA-Public Use
  Company Number: SE-PFIZER INC-2019182817

PATIENT
  Sex: Female
  Weight: 50 kg

DRUGS (3)
  1. DIMOR [Suspect]
     Active Substance: LOPERAMIDE
     Dosage: UNK
     Route: 048
     Dates: start: 20170210, end: 20170210
  2. VIAGRA [Suspect]
     Active Substance: SILDENAFIL CITRATE
     Dosage: UNK
     Route: 048
     Dates: start: 20170210, end: 20170210
  3. IMOVANE [Concomitant]
     Active Substance: ZOPICLONE
     Dosage: UNK

REACTIONS (8)
  - Depressed level of consciousness [Unknown]
  - Intentional overdose [Unknown]
  - Constipation [Unknown]
  - Intentional self-injury [Unknown]
  - Pneumonia aspiration [Unknown]
  - Bradycardia [Unknown]
  - Akathisia [Unknown]
  - Confusional state [Unknown]

NARRATIVE: CASE EVENT DATE: 20170210
